FAERS Safety Report 5501999-2 (Version None)
Quarter: 2007Q4

REPORT INFORMATION
  Report Type: 
  Country: None (occurrence: None)
  Receive Date: 20071030
  Receipt Date: 20071026
  Transmission Date: 20080405
  Serious: Yes (Other)
  Sender: FDA-Public Use
  Company Number: B0488812A

PATIENT
  Age: 74 Year
  Sex: Female
  Weight: 91 kg

DRUGS (10)
  1. ARIXTRA [Suspect]
     Indication: THROMBOSIS PROPHYLAXIS
     Dosage: 2.5MG PER DAY
     Route: 058
     Dates: start: 20070910, end: 20070921
  2. TRANEXAMIC ACID [Concomitant]
     Route: 048
     Dates: start: 20070906
  3. NORVASC [Concomitant]
     Indication: HYPERTENSION
     Route: 048
  4. BLOPRESS [Concomitant]
     Indication: HYPERTENSION
     Route: 048
  5. SELBEX [Concomitant]
     Indication: GASTRITIS
     Route: 048
  6. CINAL [Concomitant]
     Indication: VITAMIN C DEFICIENCY
     Route: 048
  7. NAUZELIN [Concomitant]
     Indication: GASTRITIS
     Route: 048
  8. JUVELA [Concomitant]
     Indication: NEURITIS
     Route: 048
  9. METHYCOBAL [Concomitant]
     Indication: NEURITIS
     Route: 048
  10. RASENAZOLIN [Concomitant]

REACTIONS (1)
  - CONJUNCTIVAL HAEMORRHAGE [None]
